FAERS Safety Report 10975324 (Version 1)
Quarter: 2015Q2

REPORT INFORMATION
  Report Type: Spontaneous
  Country: CA (occurrence: CA)
  Receive Date: 20150401
  Receipt Date: 20150401
  Transmission Date: 20150821
  Serious: Yes (Other)
  Sender: FDA-Public Use
  Company Number: CA-ASTRAZENECA-2015SE23599

PATIENT
  Age: 48 Year
  Sex: Male

DRUGS (3)
  1. BLOOD PRESURE MEDICATION [Concomitant]
  2. FORXIGA [Suspect]
     Active Substance: DAPAGLIFLOZIN
     Route: 048
     Dates: start: 201502, end: 20150310
  3. INSULIN [Concomitant]
     Active Substance: INSULIN NOS

REACTIONS (1)
  - Fungal infection [Recovered/Resolved]

NARRATIVE: CASE EVENT DATE: 20150306
